FAERS Safety Report 10846295 (Version 1)
Quarter: 2015Q1

REPORT INFORMATION
  Report Type: Spontaneous
  Country: PR (occurrence: PR)
  Receive Date: 20150220
  Receipt Date: 20150220
  Transmission Date: 20150721
  Serious: No
  Sender: FDA-Public Use
  Company Number: PR-ABBVIE-15K-131-1339110-00

PATIENT
  Age: 73 Year
  Sex: Male

DRUGS (4)
  1. ALOE [Concomitant]
     Active Substance: ALOE
     Indication: PRODUCT USED FOR UNKNOWN INDICATION
  2. HUMIRA [Suspect]
     Active Substance: ADALIMUMAB
     Indication: PSORIASIS
     Route: 058
     Dates: start: 20140811, end: 20141103
  3. HUMIRA [Suspect]
     Active Substance: ADALIMUMAB
     Indication: PSORIASIS
  4. INFLUENZA VACCINE [Suspect]
     Active Substance: INFLUENZA VIRUS VACCINE
     Indication: PRODUCT USED FOR UNKNOWN INDICATION
     Route: 065

REACTIONS (4)
  - Pyrexia [Recovering/Resolving]
  - Nasal congestion [Recovering/Resolving]
  - Nasopharyngitis [Unknown]
  - Expired product administered [Unknown]

NARRATIVE: CASE EVENT DATE: 2014
